FAERS Safety Report 18217567 (Version 1)
Quarter: 2020Q3

REPORT INFORMATION
  Report Type: Spontaneous
  Country: US (occurrence: US)
  Receive Date: 20200831
  Receipt Date: 20200831
  Transmission Date: 20201103
  Serious: No
  Sender: FDA-Public Use
  Company Number: None

PATIENT
  Age: 72 Year
  Sex: Male

DRUGS (1)
  1. SEMAGLUTIDE (SEMAGLUTIDE 3MG TAB) [Suspect]
     Active Substance: SEMAGLUTIDE
     Dates: start: 20190613

REACTIONS (2)
  - Endophthalmitis [None]
  - Eye pain [None]

NARRATIVE: CASE EVENT DATE: 20200623
